FAERS Safety Report 25378062 (Version 1)
Quarter: 2025Q2

REPORT INFORMATION
  Report Type: Spontaneous
  Country: KR (occurrence: KR)
  Receive Date: 20250530
  Receipt Date: 20250530
  Transmission Date: 20250717
  Serious: Yes (Other)
  Sender: GILEAD
  Company Number: KR-GILEAD-2025-0715190

PATIENT
  Age: 70 Year
  Sex: Female

DRUGS (1)
  1. VIREAD [Suspect]
     Active Substance: TENOFOVIR DISOPROXIL FUMARATE
     Indication: Hepatic cirrhosis
     Dosage: 1 DOSAGE FORM, QD
     Route: 065
     Dates: start: 20240821

REACTIONS (1)
  - Osteoporosis [Recovered/Resolved]

NARRATIVE: CASE EVENT DATE: 20240821
